FAERS Safety Report 6862961-0 (Version None)
Quarter: 2010Q3

REPORT INFORMATION
  Report Type: 
  Country: None (occurrence: None)
  Receive Date: 20100721
  Receipt Date: 20100714
  Transmission Date: 20110219
  Serious: Yes (Hospitalization, Other)
  Sender: FDA-Public Use
  Company Number: JP-PFIZER INC-2010087470

PATIENT
  Age: 69 Year
  Sex: Male

DRUGS (4)
  1. HYDROCORTISONE SODIUM SUCCINATE [Suspect]
     Dosage: 300 MG/DAY
     Dates: start: 20071119
  2. GALENIC /PANIPENEM/BETAMIPRON/ [Concomitant]
     Dosage: 1.5 G/DAY
     Dates: start: 20071119, end: 20071101
  3. MINOCYCLINE [Concomitant]
     Dosage: 200 MG/DAY
     Dates: start: 20071119, end: 20071101
  4. CIPROFLOXACIN [Concomitant]
     Dosage: 600 MG/DAY
     Dates: start: 20071101, end: 20071101

REACTIONS (4)
  - HEPATIC FUNCTION ABNORMAL [None]
  - PNEUMONIA [None]
  - PYOTHORAX [None]
  - SEPTIC SHOCK [None]
